FAERS Safety Report 8459355 (Version 3)
Quarter: 2013Q3

REPORT INFORMATION
  Report Type: Spontaneous
  Country: US (occurrence: US)
  Receive Date: 20120314
  Receipt Date: 20130910
  Transmission Date: 20140515
  Serious: No
  Sender: FDA-Public Use
  Company Number: US-ASTRAZENECA-2011SE36524

PATIENT
  Age: 62 Year
  Sex: Female
  Weight: 83.9 kg

DRUGS (7)
  1. TOPROL XL [Suspect]
     Indication: HYPERTENSION
     Route: 048
  2. CRESTOR [Suspect]
     Route: 048
  3. NEXIUM [Suspect]
     Indication: GASTROOESOPHAGEAL REFLUX DISEASE
     Route: 048
  4. BENICAR [Concomitant]
     Indication: BLOOD PRESSURE ABNORMAL
  5. GLYBURIDE [Concomitant]
     Indication: BLOOD GLUCOSE ABNORMAL
  6. METFORMIN [Concomitant]
     Indication: DIABETES MELLITUS
  7. LANTUS [Concomitant]
     Indication: DIABETES MELLITUS

REACTIONS (5)
  - Palpitations [Unknown]
  - Constipation [Unknown]
  - Drug dose omission [Unknown]
  - Gastric disorder [Unknown]
  - Gastrooesophageal reflux disease [Unknown]
